FAERS Safety Report 10190437 (Version 1)
Quarter: 2014Q2

REPORT INFORMATION
  Report Type: Spontaneous
  Country: US (occurrence: US)
  Receive Date: 20140522
  Receipt Date: 20140522
  Transmission Date: 20141212
  Serious: No
  Sender: FDA-Public Use
  Company Number: US-009507513-1405USA008758

PATIENT
  Age: 63 Year
  Sex: Female

DRUGS (2)
  1. PEGINTRON [Suspect]
     Indication: HEPATITIS C
     Dosage: 160 MCG, QW
     Dates: start: 201402
  2. PEGINTRON [Suspect]
     Dosage: 80 MICROGRAM, QW

REACTIONS (3)
  - White blood cell count decreased [Unknown]
  - Wrong technique in drug usage process [Unknown]
  - Inappropriate schedule of drug administration [Unknown]
